FAERS Safety Report 7556216-9 (Version None)
Quarter: 2011Q2

REPORT INFORMATION
  Report Type: 
  Country: None (occurrence: None)
  Receive Date: 20110615
  Receipt Date: 20110615
  Transmission Date: 20111010
  Serious: Yes (Other)
  Sender: FDA-Public Use
  Company Number: None

PATIENT
  Age: 32 Year
  Sex: Male
  Weight: 102.0593 kg

DRUGS (1)
  1. OXCARBAZEPINE [Suspect]
     Indication: BIPOLAR I DISORDER
     Dosage: 300MG 2X PER DAY PO
     Route: 048

REACTIONS (6)
  - APATHY [None]
  - EMOTIONAL DISORDER [None]
  - TREMOR [None]
  - SUICIDAL BEHAVIOUR [None]
  - MOTOR DYSFUNCTION [None]
  - DISTURBANCE IN ATTENTION [None]
